FAERS Safety Report 19879212 (Version 2)
Quarter: 2021Q4

REPORT INFORMATION
  Report Type: Spontaneous
  Country: JP (occurrence: JP)
  Receive Date: 20210924
  Receipt Date: 20211004
  Transmission Date: 20220303
  Serious: Yes (Other)
  Sender: FDA-Public Use
  Company Number: JP-TAKEDA-2021TJP083795

PATIENT
  Age: 73 Year
  Sex: Male
  Weight: 75 kg

DRUGS (4)
  1. CABOMETYX [Suspect]
     Active Substance: CABOZANTINIB S-MALATE
     Indication: Renal cell carcinoma
     Dosage: 40 MG, QD
     Route: 048
     Dates: start: 20210726
  2. XTANDI [Concomitant]
     Active Substance: ENZALUTAMIDE
     Indication: Prostate cancer
     Dosage: 160 MG, QD
     Route: 048
     Dates: start: 20200915
  3. GOSERELIN ACETATE [Concomitant]
     Active Substance: GOSERELIN ACETATE
     Indication: Prostate cancer
     Dosage: 240 MG, Q4WEEKS
     Route: 058
     Dates: start: 20200915
  4. ZOLEDRONIC ACID [Concomitant]
     Active Substance: ZOLEDRONIC ACID
     Indication: Prostate cancer
     Dosage: 3.2 MG, Q4WEEKS
     Route: 041
     Dates: start: 20200915

REACTIONS (1)
  - Subperiosteal abscess [Recovering/Resolving]

NARRATIVE: CASE EVENT DATE: 20210826
